FAERS Safety Report 16941771 (Version 1)
Quarter: 2019Q4

REPORT INFORMATION
  Report Type: Spontaneous
  Country: US (occurrence: US)
  Receive Date: 20191020
  Receipt Date: 20191020
  Transmission Date: 20200122
  Serious: No
  Sender: FDA-Public Use
  Company Number: None

PATIENT
  Age: 62 Year
  Sex: Female
  Weight: 57.15 kg

DRUGS (14)
  1. DEXILANT [Concomitant]
     Active Substance: DEXLANSOPRAZOLE
  2. RIZATRIPTAN. [Concomitant]
     Active Substance: RIZATRIPTAN
  3. MELATONIN [Concomitant]
     Active Substance: MELATONIN
  4. TURMERIC [Concomitant]
     Active Substance: HERBALS\TURMERIC
  5. TROKENDI XR [Concomitant]
     Active Substance: TOPIRAMATE
  6. SIMVASTATIN. [Concomitant]
     Active Substance: SIMVASTATIN
  7. ESTRADIOL. [Concomitant]
     Active Substance: ESTRADIOL
  8. VITAMIN D3 [Concomitant]
     Active Substance: CHOLECALCIFEROL
  9. BUTTER BUR [Concomitant]
  10. DESVENLAFAXINE. [Concomitant]
     Active Substance: DESVENLAFAXINE
  11. ONDANSETRON [Concomitant]
     Active Substance: ONDANSETRON
  12. VYLEESI [Suspect]
     Active Substance: BREMELANOTIDE ACETATE
     Indication: LOSS OF LIBIDO
     Dosage: ?          QUANTITY:1 INJECTION(S);?
     Route: 058
     Dates: start: 20191004, end: 20191018
  13. SILENOR [Concomitant]
     Active Substance: DOXEPIN HYDROCHLORIDE
  14. B12 COMPLEX [Concomitant]

REACTIONS (10)
  - Nasal congestion [None]
  - Nausea [None]
  - Dizziness [None]
  - Therapy non-responder [None]
  - Vomiting [None]
  - Migraine [None]
  - Vulvovaginal discomfort [None]
  - Headache [None]
  - Pain [None]
  - Vaginal discharge [None]

NARRATIVE: CASE EVENT DATE: 20191018
